FAERS Safety Report 8244121-4 (Version None)
Quarter: 2012Q1

REPORT INFORMATION
  Report Type: 
  Country: None (occurrence: None)
  Receive Date: 20120309
  Receipt Date: 20101015
  Transmission Date: 20120608
  Serious: Yes (Other)
  Sender: FDA-Public Use
  Company Number: PHHY2010US43832

PATIENT
  Age: 40 Year
  Sex: Female

DRUGS (7)
  1. EXTAVIA [Suspect]
     Indication: MULTIPLE SCLEROSIS
     Dosage: , SUBCUTANEOUS, 0.25 MG, QOD, SUBCUTANEOUS, SUBCUTANEOUS
     Route: 058
     Dates: start: 20100301
  2. EXTAVIA [Suspect]
     Indication: MULTIPLE SCLEROSIS
     Dosage: , SUBCUTANEOUS, 0.25 MG, QOD, SUBCUTANEOUS, SUBCUTANEOUS
     Route: 058
     Dates: end: 20100621
  3. EXTAVIA [Suspect]
     Indication: MULTIPLE SCLEROSIS
     Dosage: , SUBCUTANEOUS, 0.25 MG, QOD, SUBCUTANEOUS, SUBCUTANEOUS
     Route: 058
     Dates: start: 20100322
  4. SYNTHROID [Concomitant]
  5. SUMATRIPTAN SUCCINATE (IMITREX) [Concomitant]
  6. PROVIGIL [Concomitant]
  7. FOLIC ACID [Concomitant]

REACTIONS (3)
  - WEIGHT DECREASED [None]
  - ANOSMIA [None]
  - AGEUSIA [None]
